FAERS Safety Report 8500513-7 (Version None)
Quarter: 2012Q3

REPORT INFORMATION
  Report Type: 
  Country: None (occurrence: None)
  Receive Date: 20120710
  Receipt Date: 20120706
  Transmission Date: 20120928
  Serious: Yes (Death)
  Sender: FDA-Public Use
  Company Number: US-ROCHE-1024496

PATIENT
  Sex: Female
  Weight: 59.02 kg

DRUGS (1)
  1. XELODA [Suspect]
     Indication: COLON CANCER
     Dosage: 500MG 2 TABS
     Route: 048
     Dates: start: 20111115

REACTIONS (2)
  - DEATH [None]
  - BACK PAIN [None]
